FAERS Safety Report 7959089-5 (Version None)
Quarter: 2011Q4

REPORT INFORMATION
  Report Type: 
  Country: None (occurrence: None)
  Receive Date: 20111206
  Receipt Date: 20111206
  Transmission Date: 20120403
  Serious: Yes (Disabling)
  Sender: FDA-Public Use
  Company Number: None

PATIENT
  Age: 75 Year
  Sex: Female
  Weight: 57.152 kg

DRUGS (1)
  1. TERBINAFINE HCL [Suspect]
     Indication: ONYCHOMYCOSIS
     Dosage: 84
     Dates: start: 20111011, end: 20111116

REACTIONS (10)
  - VISUAL IMPAIRMENT [None]
  - WEIGHT DECREASED [None]
  - DECREASED APPETITE [None]
  - AGEUSIA [None]
  - JAUNDICE [None]
  - LIVER INJURY [None]
  - CHILLS [None]
  - PYREXIA [None]
  - DRY MOUTH [None]
  - CHROMATURIA [None]
